FAERS Safety Report 8369548-1 (Version None)
Quarter: 2012Q2

REPORT INFORMATION
  Report Type: 
  Country: None (occurrence: None)
  Receive Date: 20120517
  Receipt Date: 20120517
  Transmission Date: 20120825
  Serious: No
  Sender: FDA-Public Use
  Company Number: None

PATIENT
  Sex: Male
  Weight: 83.4619 kg

DRUGS (1)
  1. REMICADE [Suspect]
     Indication: RHEUMATOID ARTHRITIS
     Dosage: 400 MG IV Q 8  HRS
     Route: 042

REACTIONS (8)
  - RASH ERYTHEMATOUS [None]
  - PARAESTHESIA [None]
  - PRURITUS [None]
  - PALMAR ERYTHEMA [None]
  - MUSCLE TIGHTNESS [None]
  - URTICARIA [None]
  - RASH PRURITIC [None]
  - OEDEMA PERIPHERAL [None]
